FAERS Safety Report 21260475 (Version 2)
Quarter: 2022Q3

REPORT INFORMATION
  Report Type: Spontaneous
  Country: JP (occurrence: JP)
  Receive Date: 20220826
  Receipt Date: 20220830
  Transmission Date: 20221026
  Serious: Yes (Other)
  Sender: FDA-Public Use
  Company Number: JP-JNJFOC-20220855669

PATIENT
  Age: 64 Year
  Sex: Male

DRUGS (1)
  1. MINOXIDIL [Suspect]
     Active Substance: MINOXIDIL
     Indication: Androgenetic alopecia
     Dosage: 1 ML TWO TIMES A DAY
     Route: 061

REACTIONS (2)
  - Neoplasm malignant [Recovered/Resolved]
  - Cancer surgery [Recovered/Resolved]

NARRATIVE: CASE EVENT DATE: 20210101
